FAERS Safety Report 4463993-2 (Version None)
Quarter: 2004Q4

REPORT INFORMATION
  Report Type: 
  Country: None (occurrence: None)
  Receive Date: 20041001
  Receipt Date: 20040908
  Transmission Date: 20050328
  Serious: Yes (Hospitalization, Other)
  Sender: FDA-Public Use
  Company Number: US-BRISTOL-MYERS SQUIBB COMPANY-12705919

PATIENT
  Age: 70 Year
  Sex: Male

DRUGS (5)
  1. CEPHALEXIN [Suspect]
     Indication: URINARY TRACT INFECTION
     Route: 048
     Dates: start: 19730501, end: 19730601
  2. CEPHALOTHIN [Concomitant]
     Route: 042
     Dates: start: 19730501, end: 19730501
  3. TOLBUTAMIDE [Concomitant]
  4. AMPICILLIN [Concomitant]
     Dates: start: 19730501
  5. SULFONAMIDE [Concomitant]
     Dates: start: 19730501

REACTIONS (3)
  - HEPATOTOXICITY [None]
  - HYPERKALAEMIA [None]
  - RENAL FAILURE ACUTE [None]
